FAERS Safety Report 6992125-1 (Version None)
Quarter: 2010Q3

REPORT INFORMATION
  Report Type: 
  Country: None (occurrence: None)
  Receive Date: 20100830
  Receipt Date: 20100607
  Transmission Date: 20110219
  Serious: No
  Sender: FDA-Public Use
  Company Number: 2010071987

PATIENT
  Age: 67 Year
  Sex: Female
  Weight: 72.6 kg

DRUGS (2)
  1. TOVIAZ [Suspect]
     Indication: BLADDER SPHINCTER ATONY
     Dosage: 08 MG, 1X/DAY, ORAL
     Route: 048
     Dates: start: 20100401
  2. METHOTREXATE [Concomitant]

REACTIONS (3)
  - DRY MOUTH [None]
  - GLOSSODYNIA [None]
  - STOMATITIS [None]
